FAERS Safety Report 7126521-9 (Version None)
Quarter: 2010Q4

REPORT INFORMATION
  Report Type: 
  Country: None (occurrence: None)
  Receive Date: 20101129
  Receipt Date: 20101124
  Transmission Date: 20110411
  Serious: Yes (Other)
  Sender: FDA-Public Use
  Company Number: EE-ROCHE-744011

PATIENT
  Sex: Male
  Weight: 60 kg

DRUGS (1)
  1. ISOTRETINOIN [Suspect]
     Indication: ACNE CONGLOBATA
     Dosage: DOSE:20 MG + 10 MG
     Route: 048
     Dates: start: 20100916, end: 20101025

REACTIONS (1)
  - SKIN FISSURES [None]
